FAERS Safety Report 6515827-X (Version None)
Quarter: 2009Q4

REPORT INFORMATION
  Report Type: 
  Country: None (occurrence: None)
  Receive Date: 20091211
  Receipt Date: 20081015
  Transmission Date: 20100525
  Serious: Yes (Life-Threatening, Hospitalization, Other)
  Sender: FDA-Public Use
  Company Number: SPV1-2008-01927

PATIENT
  Age: 37 Year
  Sex: Male
  Weight: 74.8 kg

DRUGS (3)
  1. ADDERALL XR 10 [Suspect]
     Indication: ATTENTION DEFICIT/HYPERACTIVITY DISORDER
     Dosage: 100 MG (FIVE 20MG CASPSULES), 1X/DAY:QD, ORAL;  20 MG, 1X/DAY:QD, ORAL
     Route: 048
     Dates: start: 20040223, end: 20051003
  2. ADDERALL XR 10 [Suspect]
     Indication: ATTENTION DEFICIT/HYPERACTIVITY DISORDER
     Dosage: 100 MG (FIVE 20MG CASPSULES), 1X/DAY:QD, ORAL;  20 MG, 1X/DAY:QD, ORAL
     Route: 048
     Dates: start: 20050101, end: 20080424
  3. ZOLOFT [Concomitant]

REACTIONS (2)
  - OVERDOSE [None]
  - PSYCHOTIC DISORDER [None]
